FAERS Safety Report 4842558-4 (Version None)
Quarter: 2005Q4

REPORT INFORMATION
  Report Type: 
  Country: None (occurrence: None)
  Receive Date: 20051128
  Receipt Date: 20051111
  Transmission Date: 20060501
  Serious: Yes (Hospitalization)
  Sender: FDA-Public Use
  Company Number: TRP_0492_2005

PATIENT
  Age: 52 Year
  Sex: Male

DRUGS (12)
  1. RIBASPHERE [Suspect]
     Indication: HEPATITIS C
     Dosage: DF PO
     Route: 048
     Dates: start: 20050826
  2. PEG-INTRON [Suspect]
     Indication: HEPATITIS C
     Dosage: DF PO
     Route: 048
     Dates: start: 20050826
  3. CYMBALTA [Concomitant]
  4. GLIPIZIDE [Concomitant]
  5. HYDROCODONE BITARTRATE [Concomitant]
  6. LAMICTAL [Concomitant]
  7. METFORMIN HYDROCHLORIDE [Concomitant]
  8. IRON PREPARATION (NOS) [Concomitant]
  9. PROTONIX [Concomitant]
  10. SEROQUEL [Concomitant]
  11. TYLENOL [Concomitant]
  12. PROTONIX INJECTABLE AND ORAL [Concomitant]

REACTIONS (5)
  - ABDOMINAL DISTENSION [None]
  - ABDOMINAL PAIN UPPER [None]
  - GASTRIC HAEMORRHAGE [None]
  - RED BLOOD CELL COUNT DECREASED [None]
  - VOMITING [None]
